FAERS Safety Report 4299868-1 (Version None)
Quarter: 2004Q1

REPORT INFORMATION
  Report Type: 
  Country: None (occurrence: None)
  Receive Date: 20040219
  Receipt Date: 20040219
  Transmission Date: 20041129
  Serious: Yes (Hospitalization)
  Sender: FDA-Public Use
  Company Number: None

PATIENT
  Sex: Female
  Weight: 83.9154 kg

DRUGS (2)
  1. ETHYOL [Suspect]
     Dosage: 500 MG DAILY WITH RT
     Dates: start: 20040120, end: 20040128
  2. CISPLATIN [Concomitant]

REACTIONS (2)
  - DERMATITIS ALLERGIC [None]
  - VOMITING [None]
